FAERS Safety Report 25619087 (Version 3)
Quarter: 2025Q3

REPORT INFORMATION
  Report Type: Spontaneous
  Country: JP (occurrence: JP)
  Receive Date: 20250729
  Receipt Date: 20250823
  Transmission Date: 20251020
  Serious: Yes (Hospitalization, Other)
  Sender: ABBVIE
  Company Number: JP-ABBVIE-6369722

PATIENT
  Age: 50 Year
  Sex: Male
  Weight: 49 kg

DRUGS (14)
  1. HUMIRA [Suspect]
     Active Substance: ADALIMUMAB
     Indication: Crohn^s disease
     Route: 058
  2. SKYRIZI [Suspect]
     Active Substance: RISANKIZUMAB-RZAA
     Indication: Crohn^s disease
     Route: 058
     Dates: start: 20240304, end: 202506
  3. CEFMETAZOLE SODIUM [Concomitant]
     Active Substance: CEFMETAZOLE SODIUM
     Indication: Crohn^s disease
     Dates: start: 20250710, end: 20250710
  4. CEFMETAZOLE SODIUM [Concomitant]
     Active Substance: CEFMETAZOLE SODIUM
     Indication: Crohn^s disease
     Dosage: PATIENT ROA; INTRAVENOUS DRIP?2 GRAM
     Dates: start: 20250709, end: 20250709
  5. CEFMETAZOLE SODIUM [Concomitant]
     Active Substance: CEFMETAZOLE SODIUM
     Indication: Crohn^s disease
     Dosage: PATIENT ROA; INTRAVENOUS DRIP?4 GRAM
     Dates: start: 20250711, end: 20250714
  6. AMINO ACIDS\CARBOHYDRATES\MINERALS\SOYBEAN OIL\VITAMINS [Concomitant]
     Active Substance: AMINO ACIDS\CARBOHYDRATES\MINERALS\SOYBEAN OIL\VITAMINS
     Indication: Crohn^s disease
     Route: 048
  7. OMEPRAZOLE [Concomitant]
     Active Substance: OMEPRAZOLE
     Indication: Crohn^s disease
     Dosage: PATIENT ROA: INTRAVENOUS DRIP?40 MILLIGRAM
     Dates: start: 20250708, end: 20250711
  8. Lactomin, amylolytic bacillus and clostridium butyricum [Concomitant]
     Indication: Crohn^s disease
     Route: 048
  9. BROTIZOLAM [Concomitant]
     Active Substance: BROTIZOLAM
     Indication: Crohn^s disease
     Dosage: 0.25 MILLIGRAM
     Route: 048
  10. BUDESONIDE [Concomitant]
     Active Substance: BUDESONIDE
     Indication: Crohn^s disease
     Dosage: 6 MILLIGRAM
     Route: 048
  11. BUDESONIDE [Concomitant]
     Active Substance: BUDESONIDE
     Indication: Crohn^s disease
     Dosage: 9 MILLIGRAM
     Route: 048
     Dates: start: 20250715, end: 20250716
  12. PREDNISONE [Concomitant]
     Active Substance: PREDNISONE
     Indication: Crohn^s disease
     Dosage: PATIENT ROA :INTRAVENOUS DRIP?5 MILLIGRAM
     Dates: start: 20250708, end: 20250709
  13. SKYRIZI [Suspect]
     Active Substance: RISANKIZUMAB-RZAA
     Indication: Crohn^s disease
     Route: 042
     Dates: start: 20250723, end: 20250723
  14. MESALAMINE [Concomitant]
     Active Substance: MESALAMINE
     Indication: Crohn^s disease
     Route: 048

REACTIONS (10)
  - Condition aggravated [Recovering/Resolving]
  - Crohn^s disease [Recovering/Resolving]
  - Therapeutic product effect incomplete [Unknown]
  - Small intestinal resection [Unknown]
  - Colectomy [Unknown]
  - Proctectomy [Unknown]
  - Intestinal obstruction [Recovering/Resolving]
  - Ileocaecal resection [Unknown]
  - Enterostomy [Unknown]
  - Enterostomy [Unknown]

NARRATIVE: CASE EVENT DATE: 20250708
